FAERS Safety Report 9124069 (Version 1)
Quarter: 2013Q1

REPORT INFORMATION
  Report Type: Spontaneous
  Country: CA (occurrence: CA)
  Receive Date: 20130227
  Receipt Date: 20130227
  Transmission Date: 20140127
  Serious: Yes (Hospitalization)
  Sender: FDA-Public Use
  Company Number: CA-AMGEN-CANSP2013012074

PATIENT
  Sex: Male

DRUGS (1)
  1. NPLATE [Suspect]
     Indication: PLATELET COUNT ABNORMAL
     Dosage: UNK

REACTIONS (3)
  - Platelet count decreased [Unknown]
  - Hospitalisation [Unknown]
  - Medication error [Unknown]
